FAERS Safety Report 8461226-3 (Version None)
Quarter: 2012Q2

REPORT INFORMATION
  Report Type: 
  Country: None (occurrence: None)
  Receive Date: 20120619
  Receipt Date: 20120619
  Transmission Date: 20120825
  Serious: Yes (Other)
  Sender: FDA-Public Use
  Company Number: None

PATIENT
  Sex: Female
  Weight: 54.4316 kg

DRUGS (1)
  1. QUETIAPINE [Suspect]
     Indication: BIPOLAR DISORDER
     Dosage: 400MG QHS PO
     Route: 048
     Dates: start: 20120611, end: 20120618

REACTIONS (6)
  - SWOLLEN TONGUE [None]
  - DRY MOUTH [None]
  - POOR QUALITY SLEEP [None]
  - DEPRESSED MOOD [None]
  - IRRITABILITY [None]
  - IMPAIRED WORK ABILITY [None]
